FAERS Safety Report 6537115-8 (Version None)
Quarter: 2010Q1

REPORT INFORMATION
  Report Type: 
  Country: None (occurrence: None)
  Receive Date: 20100114
  Receipt Date: 20100108
  Transmission Date: 20100710
  Serious: Yes (Other)
  Sender: FDA-Public Use
  Company Number: TR-ELI_LILLY_AND_COMPANY-TR200912006045

PATIENT
  Age: 35 Year
  Sex: Female

DRUGS (4)
  1. HUMULIN 70/30 [Suspect]
     Indication: DIABETES MELLITUS
     Dosage: 16 IU, EACH MORNING
     Route: 058
     Dates: start: 20090929, end: 20090101
  2. HUMULIN 70/30 [Suspect]
     Dosage: 8 IU, EACH EVENING
     Route: 058
     Dates: start: 20090929, end: 20090101
  3. EKLIPS [Concomitant]
     Indication: HYPERTENSION
     Dosage: UNK UNK, DAILY (1/D)
     Route: 048
     Dates: start: 20080101
  4. GLUKOFEN [Concomitant]
     Dates: start: 20090101

REACTIONS (4)
  - ABORTION SPONTANEOUS [None]
  - DRUG EXPOSURE DURING PREGNANCY [None]
  - FOETAL GROWTH RETARDATION [None]
  - INTRA-UTERINE DEATH [None]
